FAERS Safety Report 24939631 (Version 1)
Quarter: 2025Q1

REPORT INFORMATION
  Report Type: Spontaneous
  Country: US (occurrence: US)
  Receive Date: 20250207
  Receipt Date: 20250207
  Transmission Date: 20250409
  Serious: No
  Sender: EMCURE PHARMACEUTICALS LTD
  Company Number: US-AVET LIFESCIENCES LTD-2025-AVET-000020

PATIENT

DRUGS (7)
  1. NIFEDIPINE [Suspect]
     Active Substance: NIFEDIPINE
     Indication: Hypertension
     Route: 065
  2. DOXAZOSIN [Suspect]
     Active Substance: DOXAZOSIN MESYLATE
     Indication: Hypertension
     Route: 065
  3. HYDRALAZINE HYDROCHLORIDE [Concomitant]
     Active Substance: HYDRALAZINE HYDROCHLORIDE
     Indication: Product used for unknown indication
     Route: 065
  4. LENVIMA [Concomitant]
     Active Substance: LENVATINIB
     Indication: Renal cancer
     Route: 048
     Dates: start: 20240626
  5. KEYTRUDA [Concomitant]
     Active Substance: PEMBROLIZUMAB
     Route: 065
  6. LEVOTHYROXINE SODIUM [Concomitant]
     Active Substance: LEVOTHYROXINE SODIUM
     Route: 065
  7. ALLOPURINOL [Concomitant]
     Active Substance: ALLOPURINOL
     Indication: Product used for unknown indication
     Route: 065

REACTIONS (2)
  - Swelling [Not Recovered/Not Resolved]
  - Dry mouth [Not Recovered/Not Resolved]
